FAERS Safety Report 8189201-7 (Version None)
Quarter: 2012Q1

REPORT INFORMATION
  Report Type: 
  Country: None (occurrence: None)
  Receive Date: 20120307
  Receipt Date: 20120223
  Transmission Date: 20120608
  Serious: Yes (Hospitalization)
  Sender: FDA-Public Use
  Company Number: FR-RANBAXY-2012RR-53651

PATIENT
  Sex: Female

DRUGS (9)
  1. ELUDRIL [Suspect]
     Indication: PRODUCT USED FOR UNKNOWN INDICATION
     Dosage: UNK
     Route: 048
     Dates: start: 20120127, end: 20120128
  2. AMOXICILLIN [Suspect]
     Indication: PRODUCT USED FOR UNKNOWN INDICATION
     Dosage: 1 G, BID
     Route: 048
     Dates: start: 20120127, end: 20120128
  3. ACETAMINOPHEN [Suspect]
     Indication: PAIN
     Dosage: 1 G, TID
     Route: 048
     Dates: start: 20120127, end: 20120127
  4. PROFENID 100 MG [Suspect]
     Indication: PAIN
     Dosage: 100 MG, BID
     Route: 042
     Dates: start: 20120127, end: 20120127
  5. OXYNORM 10 MG/ML [Suspect]
     Indication: PRODUCT USED FOR UNKNOWN INDICATION
     Dosage: UNK
     Route: 042
     Dates: start: 20120127, end: 20120127
  6. DIPRIVAN [Suspect]
     Indication: ANAESTHESIA
     Dosage: UNK
     Route: 042
     Dates: start: 20120127, end: 20120127
  7. ACUPAN [Suspect]
     Indication: PRODUCT USED FOR UNKNOWN INDICATION
     Dosage: UNK
     Route: 042
     Dates: start: 20120127, end: 20120127
  8. PERFALGAN 10 MG/ML [Suspect]
     Indication: PRODUCT USED FOR UNKNOWN INDICATION
     Dosage: UNK
     Route: 042
     Dates: start: 20120127, end: 20120127
  9. SUFENTANIL CITRATE [Suspect]
     Indication: PRODUCT USED FOR UNKNOWN INDICATION
     Dosage: UNK
     Route: 042
     Dates: start: 20120127, end: 20120127

REACTIONS (1)
  - CYTOLYTIC HEPATITIS [None]
